FAERS Safety Report 12487717 (Version 2)
Quarter: 2016Q2

REPORT INFORMATION
  Report Type: Report from Study
  Country: JP (occurrence: JP)
  Receive Date: 20160622
  Receipt Date: 20160623
  Transmission Date: 20160815
  Serious: Yes (Other)
  Sender: FDA-Public Use
  Company Number: JP-ACCORD-041553

PATIENT
  Age: 62 Year
  Sex: Female

DRUGS (6)
  1. PACLITAXEL/PACLITAXEL LIPOSOME [Interacting]
     Active Substance: PACLITAXEL
     Indication: OVARIAN CANCER RECURRENT
     Dosage: EVERY 3 WEEKS 6 COURSES?ALSO RECEIVED 96.0 MG PER WEEK,
  2. ACETYLSALICYLIC ACID [Concomitant]
     Active Substance: ASPIRIN
  3. ATORVASTATIN [Concomitant]
     Active Substance: ATORVASTATIN
  4. LANSOPRAZOLE. [Concomitant]
     Active Substance: LANSOPRAZOLE
  5. NEDAPLATIN [Concomitant]
     Active Substance: NEDAPLATIN
     Indication: OVARIAN CANCER RECURRENT
     Dosage: EVERY 3 WEEKS 6 COURSES
  6. CLOPIDOGREL [Suspect]
     Active Substance: CLOPIDOGREL BISULFATE
     Indication: ANGINA PECTORIS

REACTIONS (3)
  - Leukopenia [Unknown]
  - Drug interaction [Unknown]
  - Neutropenia [Unknown]
